FAERS Safety Report 16336852 (Version 1)
Quarter: 2019Q2

REPORT INFORMATION
  Report Type: Spontaneous
  Country: US (occurrence: US)
  Receive Date: 20190520
  Receipt Date: 20190520
  Transmission Date: 20190711
  Serious: Yes (Hospitalization, Disabling)
  Sender: FDA-Public Use
  Company Number: None

PATIENT
  Age: 71 Year
  Sex: Male
  Weight: 131.8 kg

DRUGS (18)
  1. FUROSEMIDE 40 MG [Concomitant]
     Active Substance: FUROSEMIDE
  2. DOXAZOSIN 4 MG [Concomitant]
     Active Substance: DOXAZOSIN\DOXAZOSIN MESYLATE
  3. TRAMADOL 50 MG [Concomitant]
     Active Substance: TRAMADOL
  4. LABETALOL [Concomitant]
     Active Substance: LABETALOL\LABETALOL HYDROCHLORIDE
  5. TADALAFIL 5 MG [Concomitant]
  6. MYCOPHENOLATE MOFETIL. [Suspect]
     Active Substance: MYCOPHENOLATE MOFETIL
     Route: 048
  7. FLUTICASONE NASAL [Concomitant]
     Active Substance: FLUTICASONE
  8. ALLOPURINOL 300 MG [Concomitant]
     Active Substance: ALLOPURINOL
  9. ELIQUIS [Concomitant]
     Active Substance: APIXABAN
     Dates: start: 20190503
  10. POTASSIUM CHLORIDE 20 MEQ [Concomitant]
  11. MINOXIDIL 2.5 MG [Concomitant]
  12. BUMETANIDE 1 MG [Concomitant]
     Active Substance: BUMETANIDE
  13. ROSUVASTATIN 10 MG [Concomitant]
     Active Substance: ROSUVASTATIN
     Dates: start: 20190503
  14. K-PHOS NEUTRAL [Concomitant]
     Active Substance: POTASSIUM PHOSPHATE\SODIUM PHOSPHATE
  15. PREDNISONE 5 MG [Concomitant]
     Active Substance: PREDNISONE
  16. TESTOSTERONE CYPIONATE 200 MG/ML [Concomitant]
  17. TACROLIMUS. [Suspect]
     Active Substance: TACROLIMUS
     Route: 048
  18. LEVOTHYROXINE 100 MCG [Concomitant]
     Active Substance: LEVOTHYROXINE

REACTIONS (3)
  - Tendon rupture [None]
  - Fall [None]
  - Joint dislocation [None]

NARRATIVE: CASE EVENT DATE: 20190508
